FAERS Safety Report 18744133 (Version 2)
Quarter: 2021Q3

REPORT INFORMATION
  Report Type: Report from Study
  Country: US (occurrence: US)
  Receive Date: 20210115
  Receipt Date: 20210812
  Transmission Date: 20211014
  Serious: Yes (Hospitalization, Other)
  Sender: FDA-Public Use
  Company Number: US-JNJFOC-20210117164

PATIENT
  Age: 42 Year
  Sex: Female

DRUGS (1)
  1. STELARA [Suspect]
     Active Substance: USTEKINUMAB
     Indication: CROHN^S DISEASE
     Route: 042
     Dates: start: 20200910, end: 202011

REACTIONS (3)
  - Crohn^s disease [Not Recovered/Not Resolved]
  - Ankylosing spondylitis [Unknown]
  - Osteomyelitis [Not Recovered/Not Resolved]

NARRATIVE: CASE EVENT DATE: 2020
